FAERS Safety Report 6518167-8 (Version None)
Quarter: 2009Q4

REPORT INFORMATION
  Report Type: 
  Country: None (occurrence: None)
  Receive Date: 20091223
  Receipt Date: 20091223
  Transmission Date: 20100525
  Serious: Yes (Hospitalization)
  Sender: FDA-Public Use
  Company Number: None

PATIENT
  Sex: Female
  Weight: 7.9833 kg

DRUGS (3)
  1. SIROLIMUS [Suspect]
     Dosage: 1 MG BID PO
     Route: 048
     Dates: start: 20090414, end: 20090424
  2. TYLENOL (CAPLET) [Concomitant]
  3. MOTRIN [Concomitant]

REACTIONS (1)
  - VIRAL INFECTION [None]
